FAERS Safety Report 8981786 (Version 1)
Quarter: 2012Q4

REPORT INFORMATION
  Report Type: 
  Country: US (occurrence: US)
  Receive Date: 20121223
  Receipt Date: 20121223
  Transmission Date: 20130627
  Serious: Yes (Other)
  Sender: FDA-Public Use
  Company Number: PHEH2012US025064

PATIENT
  Sex: Female

DRUGS (1)
  1. DIOVAN [Suspect]

REACTIONS (5)
  - Asthma [Unknown]
  - Glucose tolerance impaired [Unknown]
  - Fibromyalgia [Unknown]
  - Drug hypersensitivity [Unknown]
  - Hypersensitivity [Unknown]
